FAERS Safety Report 7016295-4 (Version None)
Quarter: 2010Q3

REPORT INFORMATION
  Report Type: 
  Country: None (occurrence: None)
  Receive Date: 20100909
  Receipt Date: 20100129
  Transmission Date: 20110219
  Serious: No
  Sender: FDA-Public Use
  Company Number: 2010SP006121

PATIENT
  Sex: Female

DRUGS (3)
  1. SAPHRIS [Suspect]
     Indication: BIPOLAR DISORDER
     Dosage: 5 MG;BID;SL
     Route: 060
     Dates: start: 20091030, end: 20091030
  2. PAXIL (COIN.) [Concomitant]
  3. REISPERIDONE (CON.) [Concomitant]

REACTIONS (5)
  - EUPHORIC MOOD [None]
  - EXTRAPYRAMIDAL DISORDER [None]
  - MUSCULOSKELETAL STIFFNESS [None]
  - PAIN [None]
  - VISION BLURRED [None]
